FAERS Safety Report 9376720 (Version 1)
Quarter: 2013Q2

REPORT INFORMATION
  Report Type: Spontaneous
  Country: US (occurrence: None)
  Receive Date: 20130628
  Receipt Date: 20130628
  Transmission Date: 20140414
  Serious: Yes (Disabling)
  Sender: FDA-Public Use
  Company Number: None

PATIENT
  Age: 76 Year
  Sex: Male
  Weight: 74.84 kg

DRUGS (1)
  1. HYDROCODONE/ACETAMINOPHEN [Suspect]
     Indication: BACK PAIN
     Dosage: 1 TABLET
     Route: 048
     Dates: start: 20040801, end: 20130624

REACTIONS (5)
  - Headache [None]
  - Hypertension [None]
  - Insomnia [None]
  - Product colour issue [None]
  - Product quality issue [None]
